FAERS Safety Report 8106439-5 (Version None)
Quarter: 2012Q1

REPORT INFORMATION
  Report Type: 
  Country: None (occurrence: None)
  Receive Date: 20120202
  Receipt Date: 20120123
  Transmission Date: 20120608
  Serious: Yes (Other)
  Sender: FDA-Public Use
  Company Number: US-JNJFOC-20120111361

PATIENT
  Age: 90 Year
  Sex: Female
  Weight: 42.64 kg

DRUGS (5)
  1. LISINOPRIL [Concomitant]
     Indication: HYPERTENSION
     Route: 065
  2. EXTRA STRENGTH TYLENOL [Suspect]
     Route: 048
  3. EXTRA STRENGTH TYLENOL [Suspect]
     Indication: BACK PAIN
     Route: 048
     Dates: end: 20120123
  4. SIMVASTATIN [Concomitant]
     Indication: BLOOD CHOLESTEROL INCREASED
     Route: 065
  5. GLIPIZIDE [Concomitant]
     Indication: DIABETES MELLITUS
     Route: 065

REACTIONS (1)
  - HALLUCINATION [None]
